FAERS Safety Report 18802244 (Version 2)
Quarter: 2021Q1

REPORT INFORMATION
  Report Type: Spontaneous
  Country: JO (occurrence: JO)
  Receive Date: 20210128
  Receipt Date: 20210203
  Transmission Date: 20210419
  Serious: Yes (Other)
  Sender: FDA-Public Use
  Company Number: JO-PFIZER INC-2021055477

PATIENT
  Age: 63 Year
  Sex: Male

DRUGS (1)
  1. DOXORUBICIN HCL [Suspect]
     Active Substance: DOXORUBICIN HYDROCHLORIDE
     Indication: BLADDER CANCER
     Dosage: 50 ML (DILUTED IN 100 CC OF SALINE 6 HOURS AFTER THE TURBT), SINGLE
     Route: 043

REACTIONS (3)
  - Off label use [Unknown]
  - Product use issue [Unknown]
  - Bladder perforation [Recovered/Resolved]
